FAERS Safety Report 25308004 (Version 1)
Quarter: 2025Q2

REPORT INFORMATION
  Report Type: Spontaneous
  Country: US (occurrence: US)
  Receive Date: 20250513
  Receipt Date: 20250513
  Transmission Date: 20250716
  Serious: No
  Sender: GALPHARM INTERNATIONAL
  Company Number: US-PERRIGO-24US008244

PATIENT
  Age: 89 Year
  Sex: Female
  Weight: 83.9 kg

DRUGS (1)
  1. MICONAZOLE 3 COMBINATION PACK [Suspect]
     Active Substance: MICONAZOLE NITRATE
     Indication: Urinary tract infection
     Dosage: 200 MG, QD
     Route: 067
     Dates: start: 20240831, end: 20240901

REACTIONS (2)
  - Vulvovaginal pain [Recovered/Resolved]
  - Product use in unapproved indication [Unknown]

NARRATIVE: CASE EVENT DATE: 20240831
